FAERS Safety Report 5532906-4 (Version None)
Quarter: 2007Q4

REPORT INFORMATION
  Report Type: 
  Country: None (occurrence: None)
  Receive Date: 20071204
  Receipt Date: 20071129
  Transmission Date: 20080405
  Serious: Yes (Hospitalization)
  Sender: FDA-Public Use
  Company Number: DE-AVENTIS-200712681DE

PATIENT
  Age: 62 Year
  Sex: Female
  Weight: 101 kg

DRUGS (8)
  1. DOCETAXEL [Suspect]
     Route: 041
     Dates: start: 20070711, end: 20070711
  2. DOCETAXEL [Suspect]
     Route: 041
     Dates: start: 20070801, end: 20070801
  3. DOCETAXEL [Suspect]
     Route: 041
     Dates: start: 20070822, end: 20070822
  4. PROVASIN TAB [Concomitant]
     Indication: HYPERTENSION
  5. BELOC                              /00376903/ [Concomitant]
     Indication: HYPERTENSION
     Dosage: DOSE: NOT REPORTED
  6. UNAT                               /01036501/ [Concomitant]
  7. ALLO [Concomitant]
     Indication: GOUT
  8. ASPIRIN [Concomitant]

REACTIONS (7)
  - ARTHRALGIA [None]
  - DEPRESSION [None]
  - DIARRHOEA [None]
  - FATIGUE [None]
  - GENERAL PHYSICAL HEALTH DETERIORATION [None]
  - NAUSEA [None]
  - STOMATITIS [None]
